FAERS Safety Report 15475856 (Version 2)
Quarter: 2018Q4

REPORT INFORMATION
  Report Type: Spontaneous
  Country: DE (occurrence: DE)
  Receive Date: 20181009
  Receipt Date: 20181011
  Transmission Date: 20190205
  Serious: Yes (Other)
  Sender: FDA-Public Use
  Company Number: DE-SUN PHARMACEUTICAL INDUSTRIES LTD-2018RR-186394

PATIENT

DRUGS (1)
  1. CIPROFLOXACIN. [Suspect]
     Active Substance: CIPROFLOXACIN
     Indication: URINARY TRACT INFECTION
     Dosage: 2 MAL TAGLICH
     Route: 048
     Dates: start: 20171011, end: 20171015

REACTIONS (14)
  - Polyneuropathy [Recovered/Resolved]
  - Asthenia [Unknown]
  - Arthralgia [Not Recovered/Not Resolved]
  - Visual impairment [Unknown]
  - Fatigue [Unknown]
  - Neuralgia [Unknown]
  - Sensory disturbance [Unknown]
  - Dyspnoea [Unknown]
  - Balance disorder [Unknown]
  - Decreased immune responsiveness [Unknown]
  - Somnolence [Unknown]
  - Intercostal neuralgia [Not Recovered/Not Resolved]
  - Cough [Recovered/Resolved]
  - Myalgia [Not Recovered/Not Resolved]

NARRATIVE: CASE EVENT DATE: 201710
